FAERS Safety Report 5602701-6 (Version None)
Quarter: 2008Q1

REPORT INFORMATION
  Report Type: 
  Country: None (occurrence: None)
  Receive Date: 20080125
  Receipt Date: 20080122
  Transmission Date: 20080703
  Serious: Yes (Life-Threatening)
  Sender: FDA-Public Use
  Company Number: JP-ASTRAZENECA-2008AP00118

PATIENT
  Age: 69 Year
  Sex: Female
  Weight: 41 kg

DRUGS (39)
  1. MEROPEN [Suspect]
     Indication: BRONCHOPNEUMONIA
     Route: 041
     Dates: start: 20070131, end: 20070206
  2. PEG-INTRON [Suspect]
     Indication: HEPATITIS C
     Route: 058
     Dates: start: 20060227, end: 20070112
  3. REBETOL [Suspect]
     Indication: HEPATITIS C
     Route: 048
     Dates: start: 20060328, end: 20061017
  4. REBETOL [Suspect]
     Dosage: (1 X 400MG, 1 X 200MG)
     Route: 048
     Dates: start: 20060227, end: 20060327
  5. MAXIPIME [Suspect]
     Indication: BRONCHOPNEUMONIA
     Route: 041
     Dates: start: 20070122, end: 20070131
  6. PAZUCROSS [Suspect]
     Indication: BRONCHOPNEUMONIA
     Route: 041
     Dates: start: 20070201, end: 20070209
  7. NU-LOTAN [Concomitant]
     Indication: HYPERTENSION
     Route: 048
     Dates: start: 20060215, end: 20070125
  8. NITROL-R [Concomitant]
     Indication: MYOCARDIAL INFARCTION
     Route: 048
     Dates: start: 20060215, end: 20070220
  9. LIPITOR [Concomitant]
     Indication: HYPERLIPIDAEMIA
     Route: 048
     Dates: start: 20060215, end: 20070125
  10. AMLODIPINE BESYLATE [Concomitant]
     Indication: HYPERTENSION
     Route: 048
     Dates: start: 20060215, end: 20070112
  11. GANATON [Concomitant]
     Indication: GASTRITIS
     Route: 048
     Dates: start: 20060215, end: 20070112
  12. SOLON [Concomitant]
     Indication: GASTRITIS
     Route: 048
     Dates: start: 20060215, end: 20070112
  13. LENDORMIN-D [Concomitant]
     Indication: INSOMNIA
     Route: 048
     Dates: start: 20060215, end: 20070119
  14. APONOL [Concomitant]
     Indication: CEREBRAL INFARCTION
     Route: 048
     Dates: start: 20060215, end: 20070112
  15. BONALON [Concomitant]
     Indication: OSTEOPOROSIS
     Route: 048
     Dates: start: 20060215, end: 20070220
  16. ALFAROL [Concomitant]
     Indication: OSTEOPOROSIS
     Route: 048
     Dates: start: 20060215, end: 20070220
  17. ASPARA-CA [Concomitant]
     Indication: OSTEOPOROSIS
     Route: 048
     Dates: start: 20060215, end: 20070220
  18. ASPIRIN [Concomitant]
     Indication: MYOCARDIAL INFARCTION
     Route: 048
     Dates: start: 20060224, end: 20061227
  19. TICLOPIDINE HCL [Concomitant]
     Indication: MYOCARDIAL INFARCTION
     Route: 048
     Dates: start: 20060224, end: 20070112
  20. PROMAC [Concomitant]
     Indication: MINERAL SUPPLEMENTATION
     Route: 048
     Dates: start: 20060227, end: 20070126
  21. WARFARIN SODIUM [Concomitant]
     Indication: MYOCARDIAL INFARCTION
     Route: 048
     Dates: start: 20060428, end: 20070112
  22. ATARAX [Concomitant]
     Indication: PRURITUS
     Route: 048
     Dates: start: 20060529, end: 20060724
  23. ATARAX [Concomitant]
     Route: 048
     Dates: start: 20070120, end: 20070125
  24. ARTIST [Concomitant]
     Indication: HYPERTENSION
     Route: 048
     Dates: start: 20060710, end: 20070125
  25. CETIRIZINE HCL [Concomitant]
     Indication: PRURITUS
     Route: 048
     Dates: start: 20061007, end: 20070112
  26. OMEPRAZOLE [Concomitant]
     Indication: GASTRIC ULCER
     Route: 048
     Dates: start: 20061114, end: 20070125
  27. SLOW-K [Concomitant]
     Indication: HYPOKALAEMIA
     Route: 048
     Dates: start: 20061127, end: 20070209
  28. K2 [Concomitant]
     Indication: ANTICOAGULANT THERAPY
     Route: 048
     Dates: start: 20070112, end: 20070115
  29. FESIN [Concomitant]
     Indication: HAEMORRHAGE
     Dosage: BOLUS INJECTION
     Route: 042
     Dates: start: 20070120, end: 20070207
  30. CLARITIN [Concomitant]
     Indication: PRURITUS
     Route: 048
     Dates: start: 20070126, end: 20070209
  31. GASTER D [Concomitant]
     Indication: GASTRITIS
     Route: 048
     Dates: start: 20070126, end: 20070209
  32. MICARDIS [Concomitant]
     Indication: HYPERTENSION
     Route: 048
     Dates: start: 20070127, end: 20070220
  33. TANATRIL [Concomitant]
     Indication: HYPERTENSION
     Route: 048
     Dates: start: 20070127, end: 20070209
  34. MINOMYCIN [Concomitant]
     Indication: BRONCHOPNEUMONIA
     Route: 048
     Dates: start: 20070130, end: 20070201
  35. THYRADIN-S [Concomitant]
     Indication: HYPOTHYROIDISM
     Route: 048
     Dates: start: 20070201, end: 20070220
  36. VECTACIN [Concomitant]
     Indication: BRONCHOPNEUMONIA
     Route: 041
     Dates: start: 20070207, end: 20070209
  37. RBC CONCENTRATED TRANSFUSION [Concomitant]
     Route: 042
     Dates: start: 20061115, end: 20061116
  38. RBC CONCENTRATED TRANSFUSION [Concomitant]
     Route: 042
     Dates: start: 20070113, end: 20070114
  39. RBC CONCENTRATED TRANSFUSION [Concomitant]
     Route: 042
     Dates: start: 20070210, end: 20070211

REACTIONS (1)
  - INTERSTITIAL LUNG DISEASE [None]
